FAERS Safety Report 9458436 (Version 1)
Quarter: 2013Q3

REPORT INFORMATION
  Report Type: Spontaneous
  Country: JP (occurrence: JP)
  Receive Date: 20130814
  Receipt Date: 20130814
  Transmission Date: 20140515
  Serious: Yes (Other)
  Sender: FDA-Public Use
  Company Number: PHHY2013JP084919

PATIENT
  Age: 72 Year
  Sex: Female

DRUGS (10)
  1. PREDNISOLONE [Suspect]
     Dosage: 20 MG, DAILY
     Route: 048
  2. PREDNISOLONE [Interacting]
     Dosage: 5 MG, EVERY 14 DAYS
     Route: 048
  3. SORAFENIB [Interacting]
     Indication: HEPATOCELLULAR CARCINOMA
     Dosage: 400 MG, DAILY
     Dates: start: 201104
  4. SORAFENIB [Interacting]
     Dosage: 200 MG, DAILY
  5. VOGLIBOSE [Concomitant]
     Dosage: 0.6 MG, PER DAY
  6. GLIMEPIRIDE [Concomitant]
     Dosage: 2 MG, PER DAY
  7. URSODEOXYCHOLIC ACID [Concomitant]
     Dosage: 600 MG, PER DAY
  8. CARBOCISTEIN [Concomitant]
     Dosage: 1500 MG, PER DAY
  9. RABEPRAZOLE [Concomitant]
     Dosage: 10 MG, PER DAY
  10. LEVOTHYROXINE [Concomitant]
     Dosage: 50 UG, PER DAY

REACTIONS (2)
  - Stomatitis [Unknown]
  - Drug interaction [Unknown]
